FAERS Safety Report 16084339 (Version 1)
Quarter: 2020Q3

REPORT INFORMATION
  Report Type: Report from Study
  Country: AR (occurrence: AR)
  Receive Date: 20190318
  Receipt Date: 20190318
  Transmission Date: 20201104
  Serious: Yes (Hospitalization)
  Sender: FDA-Public Use
  Company Number: AR-JNJFOC-20181110315

PATIENT
  Age: 49 Year
  Sex: Female
  Weight: 72.8 kg

DRUGS (2)
  1. ESKETAMINE [Suspect]
     Active Substance: ESKETAMINE
     Route: 045
  2. ESKETAMINE [Suspect]
     Active Substance: ESKETAMINE
     Indication: DEPRESSION
     Route: 045
     Dates: start: 20171025

REACTIONS (1)
  - Cholelithiasis [Recovered/Resolved]

NARRATIVE: CASE EVENT DATE: 20181106
